FAERS Safety Report 5126790-0 (Version None)
Quarter: 2006Q4

REPORT INFORMATION
  Report Type: 
  Country: None (occurrence: None)
  Receive Date: 20061011
  Receipt Date: 20061011
  Transmission Date: 20070319
  Serious: Yes (Other)
  Sender: FDA-Public Use
  Company Number: None

PATIENT
  Age: 44 Year
  Sex: Female
  Weight: 86.1834 kg

DRUGS (7)
  1. BUPROPION HCL [Suspect]
     Indication: FIBROMYALGIA
     Dosage: 1 PILL  TWICE DAILY
     Dates: start: 20060301, end: 20060601
  2. AMITRIPTYLINE HCL [Concomitant]
  3. CYCLOBENZAPRINE HCL [Concomitant]
  4. NAPROXEN SODIUM [Concomitant]
  5. CYMBALTA [Concomitant]
  6. LEXAPRO [Concomitant]
  7. EFFEXOR XR [Concomitant]

REACTIONS (2)
  - MEMORY IMPAIRMENT [None]
  - THINKING ABNORMAL [None]
